FAERS Safety Report 4709919-5 (Version None)
Quarter: 2005Q3

REPORT INFORMATION
  Report Type: 
  Country: None (occurrence: None)
  Receive Date: 20050708
  Receipt Date: 20050630
  Transmission Date: 20060218
  Serious: Yes (Other)
  Sender: FDA-Public Use
  Company Number: DE-ROCHE-409259

PATIENT
  Age: 70 Year
  Sex: Male
  Weight: 75 kg

DRUGS (3)
  1. BONDRONAT [Suspect]
     Indication: OSTEOLYSIS
     Route: 042
     Dates: start: 20040311, end: 20040806
  2. ZOMETA [Concomitant]
     Indication: OSTEOLYSIS
     Route: 042
     Dates: start: 20021223, end: 20040212
  3. MELPHALAN [Concomitant]
     Route: 042
     Dates: start: 20030115, end: 20050615

REACTIONS (1)
  - OSTEONECROSIS [None]
